FAERS Safety Report 5169030-9 (Version None)
Quarter: 2006Q4

REPORT INFORMATION
  Report Type: 
  Country: None (occurrence: None)
  Receive Date: 20061201
  Receipt Date: 20061121
  Transmission Date: 20070319
  Serious: Yes (Hospitalization, Other)
  Sender: FDA-Public Use
  Company Number: 2006-02510

PATIENT
  Age: 82 Year
  Sex: Female
  Weight: 62 kg

DRUGS (8)
  1. VELCADE [Suspect]
     Indication: MULTIPLE MYELOMA
     Dosage: 1.00 MG/M2, INTRAVENOUS
     Route: 042
     Dates: start: 20060606, end: 20060818
  2. BETAPACE [Concomitant]
  3. ALTACE [Concomitant]
  4. ASPIRIN [Concomitant]
  5. NEURONTIN [Concomitant]
  6. ZOLOFT [Concomitant]
  7. FOLIC ACID [Concomitant]
  8. DARVOCET-N 100 [Concomitant]

REACTIONS (12)
  - AORTIC VALVE DISEASE [None]
  - ATRIAL FIBRILLATION [None]
  - BLOOD POTASSIUM DECREASED [None]
  - BRAIN NATRIURETIC PEPTIDE INCREASED [None]
  - CARDIAC FAILURE CONGESTIVE [None]
  - DILATATION ATRIAL [None]
  - HYPOTENSION [None]
  - MALIGNANT HYPERTENSION [None]
  - MITRAL VALVE INCOMPETENCE [None]
  - PNEUMONIA [None]
  - RESPIRATORY DISTRESS [None]
  - VASODILATATION [None]
